FAERS Safety Report 5272280-4 (Version None)
Quarter: 2007Q1

REPORT INFORMATION
  Report Type: 
  Country: None (occurrence: None)
  Receive Date: 20070322
  Receipt Date: 20070308
  Transmission Date: 20070707
  Serious: Yes (Hospitalization)
  Sender: FDA-Public Use
  Company Number: PHBS2007JP03772

PATIENT
  Age: 66 Year
  Sex: Female

DRUGS (2)
  1. DIOVAN [Suspect]
     Indication: HYPERTENSION
     Dosage: 40 MG, QD
     Route: 048
     Dates: start: 20060911, end: 20070202
  2. AMLODIN [Concomitant]
     Dosage: 5 MG, DAY
     Route: 048
     Dates: start: 20060705

REACTIONS (2)
  - PURPURA [None]
  - THROMBOCYTOPENIA [None]
